FAERS Safety Report 6055851-7 (Version None)
Quarter: 2009Q1

REPORT INFORMATION
  Report Type: 
  Country: None (occurrence: None)
  Receive Date: 20090128
  Receipt Date: 20090119
  Transmission Date: 20090719
  Serious: Yes (Hospitalization)
  Sender: FDA-Public Use
  Company Number: FR-ASTRAZENECA-2009CG00224

PATIENT
  Age: 233 Month
  Sex: Female

DRUGS (15)
  1. FOSCAVIR [Suspect]
     Indication: CYTOMEGALOVIRUS INFECTION
     Route: 042
     Dates: end: 20080101
  2. TRUVADA [Suspect]
     Indication: HIV INFECTION
     Route: 048
     Dates: end: 20080101
  3. ISENTRESS [Suspect]
     Indication: HIV INFECTION
     Route: 048
  4. TMC 125 [Concomitant]
     Indication: HIV INFECTION
     Route: 048
  5. KALETRA [Concomitant]
     Indication: HIV INFECTION
     Route: 048
  6. FUZEON [Concomitant]
     Indication: HIV INFECTION
     Route: 058
  7. BACTRIM [Concomitant]
     Indication: OPPORTUNISTIC INFECTION PROPHYLAXIS
     Route: 048
  8. AZADOSE [Concomitant]
     Indication: OPPORTUNISTIC INFECTION PROPHYLAXIS
     Route: 048
  9. ANSATIPINE [Concomitant]
     Indication: TUBERCULOSIS
     Route: 048
     Dates: start: 20080101
  10. MYAMBUTOL [Concomitant]
     Indication: TUBERCULOSIS
     Route: 048
     Dates: start: 20080101, end: 20080526
  11. PIRILENE [Concomitant]
     Indication: TUBERCULOSIS
     Route: 048
     Dates: start: 20080101
  12. LEDERFOLINE [Concomitant]
     Indication: ANAEMIA
     Route: 048
  13. ZYPREXA [Concomitant]
     Indication: MENTAL DISORDER
     Route: 048
     Dates: start: 20080101
  14. RIMIFON [Concomitant]
     Indication: TUBERCULOSIS
     Route: 048
     Dates: start: 20080101
  15. EPIVIR [Concomitant]
     Indication: HIV INFECTION
     Route: 048

REACTIONS (1)
  - RENAL FAILURE CHRONIC [None]
